FAERS Safety Report 11929713 (Version 1)
Quarter: 2016Q1

REPORT INFORMATION
  Report Type: Spontaneous
  Country: US (occurrence: None)
  Receive Date: 20160119
  Receipt Date: 20160119
  Transmission Date: 20160526
  Serious: No
  Sender: FDA-Public Use
  Company Number: None

PATIENT
  Age: 44 Year
  Sex: Female
  Weight: 68.04 kg

DRUGS (1)
  1. LINZESS [Suspect]
     Active Substance: LINACLOTIDE
     Indication: IRRITABLE BOWEL SYNDROME
     Route: 048
     Dates: start: 20150613, end: 20150613

REACTIONS (4)
  - Blood pressure decreased [None]
  - Dizziness [None]
  - Loss of consciousness [None]
  - Blood pressure increased [None]

NARRATIVE: CASE EVENT DATE: 20150613
